FAERS Safety Report 6036515-2 (Version None)
Quarter: 2009Q1

REPORT INFORMATION
  Report Type: 
  Country: None (occurrence: None)
  Receive Date: 20090114
  Receipt Date: 20090108
  Transmission Date: 20090719
  Serious: Yes (Hospitalization)
  Sender: FDA-Public Use
  Company Number: JP-ASTRAZENECA-2009AP00427

PATIENT
  Age: 86 Year
  Sex: Male

DRUGS (3)
  1. XYLOCAINE [Suspect]
     Indication: LOCAL ANAESTHESIA
     Dosage: DOSE UNKNOWN SOLUTION 4%
     Route: 045
     Dates: start: 20081113, end: 20081113
  2. BOSMIN [Concomitant]
     Indication: LOCAL ANAESTHESIA
     Dosage: DOSE UNKNOWN
     Route: 045
     Dates: start: 20081113, end: 20081113
  3. UNKNOWNDRUG [Concomitant]
     Dosage: DOSE UNKNOWN
     Route: 045
     Dates: start: 20081113, end: 20081113

REACTIONS (2)
  - PALATAL OEDEMA [None]
  - URTICARIA [None]
